FAERS Safety Report 10173986 (Version 1)
Quarter: 2014Q2

REPORT INFORMATION
  Report Type: Spontaneous
  Country: US (occurrence: US)
  Receive Date: 20140515
  Receipt Date: 20140515
  Transmission Date: 20141212
  Serious: No
  Sender: FDA-Public Use
  Company Number: US-PFIZER INC-2014131280

PATIENT
  Age: 66 Year
  Sex: Female
  Weight: 68.03 kg

DRUGS (8)
  1. SUTENT [Suspect]
     Indication: PANCREATIC CARCINOMA
     Dosage: 25 MG, 1X/DAY, IN THE MORNING
     Dates: start: 201308
  2. SUTENT [Suspect]
     Dosage: 25 MG, 1X/DAY, IN THE EVENING
     Dates: start: 201308
  3. AMLODIPINE [Concomitant]
     Indication: HYPERTENSION
     Dosage: 10 MG, UNK
  4. LISINOPRIL [Concomitant]
     Indication: HYPERTENSION
     Dosage: 30 MG, DAILY
  5. FLUDROCORTISONE [Concomitant]
     Dosage: 0.1 MG, DAILY
  6. HYDROCHLOROTHIAZIDE [Concomitant]
     Indication: HYPERTENSION
     Dosage: 25 MG, DAILY
  7. METOPROLOL [Concomitant]
     Indication: HYPERTENSION
     Dosage: 50 MG, 2X/DAY
  8. OMEPRAZOLE [Concomitant]
     Dosage: 20 MG, DAILY

REACTIONS (1)
  - Oral mucosal blistering [Recovered/Resolved]
